FAERS Safety Report 5565131-1 (Version None)
Quarter: 2007Q4

REPORT INFORMATION
  Report Type: 
  Country: None (occurrence: None)
  Receive Date: 20071213
  Receipt Date: 20071213
  Transmission Date: 20080405
  Serious: Yes (Hospitalization)
  Sender: FDA-Public Use
  Company Number: None

PATIENT
  Sex: Female
  Weight: 85.7298 kg

DRUGS (1)
  1. ENBREL [Suspect]
     Indication: PSORIASIS
     Dosage: 50 MG TWICE WEEKLY SQ
     Route: 058
     Dates: start: 20071019, end: 20071112

REACTIONS (3)
  - APLASTIC ANAEMIA [None]
  - CHEST DISCOMFORT [None]
  - DYSPNOEA [None]
